FAERS Safety Report 7073250-6 (Version None)
Quarter: 2010Q4

REPORT INFORMATION
  Report Type: 
  Country: None (occurrence: None)
  Receive Date: 20101029
  Receipt Date: 20100517
  Transmission Date: 20110411
  Serious: No
  Sender: FDA-Public Use
  Company Number: A0860005A

PATIENT
  Age: 65 Year
  Sex: Female

DRUGS (6)
  1. ADVAIR DISKUS 100/50 [Suspect]
     Indication: SARCOIDOSIS
     Dosage: 1PUFF TWICE PER DAY
     Route: 055
     Dates: start: 20100512
  2. NEXIUM [Concomitant]
  3. SINGULAIR [Concomitant]
  4. TYLENOL PM [Concomitant]
  5. VITAMIN D [Concomitant]
  6. SULINDAC [Concomitant]

REACTIONS (1)
  - TINNITUS [None]
